FAERS Safety Report 7607484-6 (Version None)
Quarter: 2011Q3

REPORT INFORMATION
  Report Type: 
  Country: None (occurrence: None)
  Receive Date: 20110713
  Receipt Date: 20110705
  Transmission Date: 20111222
  Serious: Yes (Other)
  Sender: FDA-Public Use
  Company Number: US-US-EMD SERONO, INC.-7069396

PATIENT
  Sex: Female
  Weight: 69 kg

DRUGS (6)
  1. REBIF [Suspect]
     Route: 058
     Dates: end: 20110622
  2. LORATADINE [Concomitant]
     Indication: ALLERGIC SINUSITIS
  3. GABAPENTIN [Concomitant]
     Indication: PAIN
     Dates: start: 20090619
  4. ZOLPIDEM [Concomitant]
     Indication: INSOMNIA
     Dates: start: 20090812
  5. REBIF [Suspect]
     Indication: MULTIPLE SCLEROSIS
     Route: 058
     Dates: start: 20110419
  6. IBUPROFEN [Concomitant]
     Indication: PAIN
     Dates: start: 20110622

REACTIONS (3)
  - SUICIDAL IDEATION [None]
  - INFLUENZA [None]
  - DEPRESSION [None]
